FAERS Safety Report 25462716 (Version 4)
Quarter: 2025Q3

REPORT INFORMATION
  Report Type: Report from Study
  Country: US (occurrence: US)
  Receive Date: 20250620
  Receipt Date: 20250820
  Transmission Date: 20251021
  Serious: Yes (Other)
  Sender: ALEXION PHARMACEUTICALS
  Company Number: US-AstraZeneca-CH-00893841A

PATIENT
  Age: 75 Year
  Sex: Female
  Weight: 58.05 kg

DRUGS (2)
  1. ULTOMIRIS [Suspect]
     Active Substance: RAVULIZUMAB-CWVZ
     Indication: Myasthenia gravis
     Dosage: UNK, Q8W
     Dates: start: 20240202
  2. MESTINON [Concomitant]
     Active Substance: PYRIDOSTIGMINE BROMIDE

REACTIONS (3)
  - Immunodeficiency [Recovered/Resolved]
  - Tooth abscess [Recovered/Resolved]
  - Root canal infection [Recovered/Resolved]

NARRATIVE: CASE EVENT DATE: 20250523
